FAERS Safety Report 8563496-X (Version None)
Quarter: 2012Q3

REPORT INFORMATION
  Report Type: 
  Country: None (occurrence: None)
  Receive Date: 20120802
  Receipt Date: 20120719
  Transmission Date: 20120928
  Serious: Yes (Other)
  Sender: FDA-Public Use
  Company Number: CHPA2012US016147

PATIENT
  Age: 83 Year
  Sex: Female

DRUGS (3)
  1. MIRALAX [Concomitant]
     Indication: CONSTIPATION
     Dosage: UNK, UNK
     Route: 048
     Dates: start: 20111001, end: 20111001
  2. BENEFIBER CHEWABLE TABLET [Suspect]
     Indication: CONSTIPATION
     Dosage: 1-3 DF, PER DAY
     Route: 048
     Dates: start: 20111001
  3. MILK OF MAGNESIA TAB [Concomitant]
     Indication: CONSTIPATION
     Dosage: UNK, UNK
     Route: 048
     Dates: start: 20111001, end: 20111001

REACTIONS (2)
  - DRUG DEPENDENCE [None]
  - OFF LABEL USE [None]
